FAERS Safety Report 9657621 (Version 2)
Quarter: 2013Q4

REPORT INFORMATION
  Report Type: Spontaneous
  Country: US (occurrence: US)
  Receive Date: 20131030
  Receipt Date: 20131030
  Transmission Date: 20140711
  Serious: Yes (Other)
  Sender: FDA-Public Use
  Company Number: US-PURDUE-USA-2010-0044201

PATIENT
  Age: 34 Year
  Sex: Male

DRUGS (6)
  1. OXYCONTIN TABLETS [Suspect]
     Indication: PAIN
     Dosage: UNK
  2. OXYCODONE HCL IR CAPSULES [Suspect]
     Indication: PAIN
     Dosage: UNK
  3. METHADONE [Suspect]
     Indication: PAIN
     Dosage: 20 MG, UNK
  4. CANNABIS [Suspect]
     Indication: DRUG ABUSE
  5. DILAUDID TABLET [Concomitant]
     Indication: PAIN
     Dosage: UNK
     Dates: start: 200608, end: 200608
  6. CELEXA                             /00582602/ [Concomitant]
     Indication: ANXIETY
     Dosage: UNK
     Dates: start: 200707

REACTIONS (7)
  - Drug dependence [Unknown]
  - Substance abuse [Unknown]
  - Drug withdrawal syndrome [Unknown]
  - Presyncope [Unknown]
  - Drug ineffective [Unknown]
  - Drug tolerance [Unknown]
  - Pain [Unknown]
